FAERS Safety Report 5043056-8 (Version None)
Quarter: 2006Q2

REPORT INFORMATION
  Report Type: 
  Country: None (occurrence: None)
  Receive Date: 20060628
  Receipt Date: 20060615
  Transmission Date: 20061013
  Serious: Yes (Hospitalization)
  Sender: FDA-Public Use
  Company Number: US-2006-014810

PATIENT
  Age: 10 Year
  Sex: Male
  Weight: 38.6 kg

DRUGS (12)
  1. LEUKINE [Suspect]
     Indication: CROHN'S DISEASE
     Dosage: 0.5 ML (231.6 MCG) 1X/DAY, SUBCUTANEOUS
     Route: 058
     Dates: start: 20060425
  2. PENTASA [Concomitant]
  3. ALBUTEROL SPIROS [Concomitant]
  4. FLOVENT [Concomitant]
  5. MIRALAX [Concomitant]
  6. DAILY MULTIVITAMIN [Concomitant]
  7. PROBIOTICA [Concomitant]
  8. PRILOSEC [Concomitant]
  9. ZOFRAN [Concomitant]
  10. PHENERGAN HCL [Concomitant]
  11. ZANTAC [Concomitant]
  12. CORTISPORIN [Concomitant]

REACTIONS (10)
  - ANURIA [None]
  - BLADDER DISTENSION [None]
  - DUODENAL ULCER [None]
  - HEADACHE [None]
  - HYDROURETER [None]
  - ILEUS [None]
  - LYMPHADENOPATHY [None]
  - OTITIS EXTERNA [None]
  - PYREXIA [None]
  - RECTAL ULCER [None]
